FAERS Safety Report 8202310-9 (Version None)
Quarter: 2012Q1

REPORT INFORMATION
  Report Type: 
  Country: None (occurrence: None)
  Receive Date: 20120312
  Receipt Date: 20120303
  Transmission Date: 20120608
  Serious: Yes (Death)
  Sender: FDA-Public Use
  Company Number: PHHY2012MX019236

PATIENT
  Age: 56 Year
  Sex: Male

DRUGS (3)
  1. HYDREA [Suspect]
  2. GLEEVEC [Suspect]
     Indication: CHRONIC MYELOID LEUKAEMIA
     Dosage: 400 MG, UNK
     Dates: start: 20050321
  3. CYTARABINE [Concomitant]
     Dosage: 10 MG, UNK

REACTIONS (7)
  - HYPERURICAEMIA [None]
  - COMA [None]
  - ANAEMIA [None]
  - HAEMOGLOBIN DECREASED [None]
  - DRUG INTOLERANCE [None]
  - PLATELET COUNT INCREASED [None]
  - HAEMATOCRIT DECREASED [None]
